FAERS Safety Report 17037170 (Version 1)
Quarter: 2019Q4

REPORT INFORMATION
  Report Type: Spontaneous
  Country: FR (occurrence: FR)
  Receive Date: 20191115
  Receipt Date: 20191115
  Transmission Date: 20200122
  Serious: Yes (Hospitalization)
  Sender: FDA-Public Use
  Company Number: FR-JNJFOC-20191115680

PATIENT
  Age: 88 Year
  Sex: Female
  Weight: 58 kg

DRUGS (12)
  1. RIVAROXABAN [Suspect]
     Active Substance: RIVAROXABAN
     Indication: ATRIAL FIBRILLATION
     Dosage: 30 MG, QD
     Route: 048
     Dates: start: 201407, end: 201910
  2. SMECTA [Suspect]
     Active Substance: MONTMORILLONITE
     Indication: GASTROENTERITIS
     Dosage: 1 DF, QD
     Route: 048
     Dates: start: 201910
  3. HEMIGOXINE NATIVELLE [Concomitant]
     Active Substance: DIGOXIN
  4. CARDENSIEL [Concomitant]
     Active Substance: BISOPROLOL FUMARATE
  5. ESCITALOPRAM [Concomitant]
     Active Substance: ESCITALOPRAM OXALATE
  6. ZYMAD [Concomitant]
     Active Substance: CHOLECALCIFEROL
  7. ERCEFURYL [Suspect]
     Active Substance: NIFUROXAZIDE
     Indication: GASTROENTERITIS
     Route: 048
     Dates: start: 201910
  8. CALCIDOSE [Concomitant]
  9. TANAKAN [Concomitant]
     Active Substance: GINKGO
  10. FUROSEMIDE. [Concomitant]
     Active Substance: FUROSEMIDE
  11. METFORMIN [Concomitant]
     Active Substance: METFORMIN HYDROCHLORIDE
  12. COVERAM [Concomitant]
     Active Substance: AMLODIPINE\PERINDOPRIL

REACTIONS (2)
  - Drug ineffective [Recovered/Resolved]
  - Pulmonary embolism [Recovering/Resolving]

NARRATIVE: CASE EVENT DATE: 20191009
